FAERS Safety Report 7016050-5 (Version None)
Quarter: 2010Q3

REPORT INFORMATION
  Report Type: 
  Country: None (occurrence: None)
  Receive Date: 20100927
  Receipt Date: 20100924
  Transmission Date: 20110219
  Serious: Yes (Hospitalization)
  Sender: FDA-Public Use
  Company Number: GXKR2009DE02546

PATIENT
  Sex: Female
  Weight: 87 kg

DRUGS (10)
  1. ACETYLSALICYLIC ACID SRT [Interacting]
     Indication: CORONARY ARTERY DISEASE
     Dosage: UNK
     Dates: start: 20000101
  2. PLAVIX [Suspect]
     Indication: CORONARY ARTERY DISEASE
     Dosage: 75 MG, BID
     Dates: start: 20080226, end: 20080429
  3. PLAVIX [Suspect]
     Dosage: 75 MG, QD
     Dates: start: 20080429
  4. BERLINSULIN H BASAL [Concomitant]
  5. BERLINSULIN H NORMAL [Concomitant]
  6. ENALAPRIL [Concomitant]
  7. METOPROLOL ^RATIOPHARM^ [Concomitant]
  8. PANTOPRAZOLE SODIUM [Concomitant]
  9. PENTAERYTHRITOL TETRANITRATE [Concomitant]
  10. SIMVASTATIN [Concomitant]

REACTIONS (1)
  - INTRA-ABDOMINAL HAEMORRHAGE [None]
